FAERS Safety Report 10922730 (Version 1)
Quarter: 2015Q1

REPORT INFORMATION
  Report Type: Spontaneous
  Country: US (occurrence: US)
  Receive Date: 20150317
  Receipt Date: 20150317
  Transmission Date: 20150721
  Serious: Yes (Life-Threatening)
  Sender: FDA-Public Use
  Company Number: US-BAYER-2015-035224

PATIENT
  Age: 55 Year
  Sex: Female

DRUGS (8)
  1. CALCIUM CARBONATE. [Suspect]
     Active Substance: CALCIUM CARBONATE
     Dosage: DAILY DOSE 1200 MG
  2. TRAZODONE [Suspect]
     Active Substance: TRAZODONE HYDROCHLORIDE
     Dosage: 150 MG, HS
  3. DIAZEPAM. [Suspect]
     Active Substance: DIAZEPAM
     Dosage: 5 MG, BID
  4. TEMAZEPAM. [Suspect]
     Active Substance: TEMAZEPAM
     Dosage: 15 MG, HS
  5. LEVOTHYROXINE [Suspect]
     Active Substance: LEVOTHYROXINE
     Dosage: DAILY DOSE 112 ?G
  6. PREMARIN [Suspect]
     Active Substance: ESTROGENS, CONJUGATED
     Dosage: DAILY DOSE .625 MG
  7. ESOMEPRAZOLE [Suspect]
     Active Substance: ESOMEPRAZOLE
     Dosage: DAILY DOSE 40 MG
  8. PROCHLORPERAZINE. [Suspect]
     Active Substance: PROCHLORPERAZINE
     Dosage: 10 MG, TID

REACTIONS (13)
  - Disorientation [None]
  - Mental status changes [None]
  - Hypercalcaemia [None]
  - Decreased appetite [None]
  - Asthenia [None]
  - Somnolence [None]
  - Abdominal tenderness [None]
  - Drug abuse [None]
  - Electrolyte imbalance [None]
  - Milk-alkali syndrome [None]
  - Confusional state [None]
  - Renal impairment [None]
  - Abdominal pain [None]
